FAERS Safety Report 6000161-7 (Version None)
Quarter: 2008Q4

REPORT INFORMATION
  Report Type: 
  Country: None (occurrence: None)
  Receive Date: 20081215
  Receipt Date: 20081208
  Transmission Date: 20090506
  Serious: Yes (Other)
  Sender: FDA-Public Use
  Company Number: US-JNJFOC-20081202375

PATIENT
  Sex: Female
  Weight: 75.75 kg

DRUGS (13)
  1. FENTANYL TRANSDERMAL SYSTEM [Suspect]
     Indication: MUSCULOSKELETAL PAIN
     Route: 062
  2. FENTANYL TRANSDERMAL SYSTEM [Suspect]
     Indication: NECK PAIN
     Route: 062
  3. FENTANYL TRANSDERMAL SYSTEM [Suspect]
     Indication: MUSCULOSKELETAL CHEST PAIN
     Route: 062
  4. FENTANYL TRANSDERMAL SYSTEM [Suspect]
     Indication: BACK PAIN
     Route: 062
  5. LIPITOR [Concomitant]
     Indication: BLOOD CHOLESTEROL INCREASED
     Route: 048
  6. TRICOR [Concomitant]
     Indication: BLOOD CHOLESTEROL
     Route: 048
  7. PREVACID [Concomitant]
     Indication: GASTRIC DISORDER
     Route: 048
  8. LASIX [Concomitant]
     Indication: FLUID RETENTION
     Route: 048
  9. AMITRIPTYLINE HCL [Concomitant]
     Indication: FEELING OF RELAXATION
     Route: 048
  10. ASPIRIN [Concomitant]
     Indication: ANTICOAGULANT THERAPY
     Route: 048
  11. TOPAMAX [Concomitant]
     Indication: NERVE INJURY
     Dosage: NERVE AND MUSCLE DAMAGE IN LEGS
     Route: 048
  12. PHENERGAN HCL [Concomitant]
     Indication: NAUSEA
     Dosage: EVERY 4-6 HOURS AS NEEDED
     Route: 048
  13. AMITIZA [Concomitant]
     Indication: GASTRIC DISORDER
     Route: 048

REACTIONS (13)
  - BACK PAIN [None]
  - COUGH [None]
  - HYPERHIDROSIS [None]
  - INTERVERTEBRAL DISC PROTRUSION [None]
  - LYMPHADENOPATHY [None]
  - MUCOUS MEMBRANE DISORDER [None]
  - MUSCULOSKELETAL CHEST PAIN [None]
  - MUSCULOSKELETAL PAIN [None]
  - NECK PAIN [None]
  - NIGHT SWEATS [None]
  - PULMONARY VALVE STENOSIS [None]
  - SENSATION OF FOREIGN BODY [None]
  - WRONG TECHNIQUE IN DRUG USAGE PROCESS [None]
